FAERS Safety Report 11358633 (Version 1)
Quarter: 2015Q3

REPORT INFORMATION
  Report Type: Spontaneous
  Country: US (occurrence: US)
  Receive Date: 20150803
  Receipt Date: 20150803
  Transmission Date: 20151125
  Serious: No
  Sender: FDA-Public Use
  Company Number: US-ELI_LILLY_AND_COMPANY-US200901004388

PATIENT
  Sex: Male

DRUGS (2)
  1. RISPERDAL [Concomitant]
     Active Substance: RISPERIDONE
  2. ZYPREXA [Suspect]
     Active Substance: OLANZAPINE
     Indication: AGGRESSION

REACTIONS (5)
  - Feeling abnormal [Recovering/Resolving]
  - Eye disorder [Recovering/Resolving]
  - Speech disorder [Recovering/Resolving]
  - Sedation [Recovering/Resolving]
  - Peripheral swelling [Recovering/Resolving]
